FAERS Safety Report 9868717 (Version 1)
Quarter: 2014Q1

REPORT INFORMATION
  Report Type: Spontaneous
  Country: US (occurrence: US)
  Receive Date: 20140204
  Receipt Date: 20140204
  Transmission Date: 20141002
  Serious: No
  Sender: FDA-Public Use
  Company Number: US-ENDO PHARMACEUTICALS INC.-METH20130006

PATIENT
  Sex: Male

DRUGS (1)
  1. METHYLPREDNISOLONE [Suspect]
     Indication: DERMATITIS CONTACT
     Dosage: DOSEPACK
     Route: 048
     Dates: start: 20130210

REACTIONS (1)
  - Drug effect delayed [Not Recovered/Not Resolved]
